FAERS Safety Report 13622279 (Version 1)
Quarter: 2017Q2

REPORT INFORMATION
  Report Type: Spontaneous
  Country: US (occurrence: US)
  Receive Date: 20170607
  Receipt Date: 20170607
  Transmission Date: 20170830
  Serious: No
  Sender: FDA-Public Use
  Company Number: US-ROCHE-1847812

PATIENT
  Sex: Female

DRUGS (23)
  1. SKELAXIN [Concomitant]
     Active Substance: METAXALONE
     Dosage: 1 REFILL, 1 TOTAL REFILL, TAKE ONE TABLET BY MOUTH THREE TIMES DAILY
     Route: 048
  2. LIPITOR [Concomitant]
     Active Substance: ATORVASTATIN CALCIUM
     Route: 065
  3. CYMBALTA [Concomitant]
     Active Substance: DULOXETINE HYDROCHLORIDE
     Dosage: 1 CAPSULE BY MOUTH 3 TIMES A DAY, 3 REFILLS 3 TOTAL REFILLS
     Route: 048
  4. OMEPRAZOLE. [Concomitant]
     Active Substance: OMEPRAZOLE
     Dosage: 1 CAPSULE BY MOUTH EVERYDAY, 3 REFILLS, 3 TOTAL REFILLS
     Route: 048
  5. KLONOPIN [Suspect]
     Active Substance: CLONAZEPAM
     Indication: INSOMNIA
     Route: 065
  6. VIIBRYD [Concomitant]
     Active Substance: VILAZODONE HYDROCHLORIDE
  7. LIOTHYRONINE [Concomitant]
     Active Substance: LIOTHYRONINE
     Dosage: 2 TABLET BY MOUTH EVERYDAY 3 REFILLS, 3 TOTAL REFILLS
     Route: 048
  8. ALLEGRA-D [Concomitant]
     Active Substance: FEXOFENADINE\PSEUDOEPHEDRINE
  9. RANEXA [Concomitant]
     Active Substance: RANOLAZINE
  10. CRESTOR [Concomitant]
     Active Substance: ROSUVASTATIN CALCIUM
  11. CODEINE [Concomitant]
     Active Substance: CODEINE
  12. NITROGLYCERIN. [Concomitant]
     Active Substance: NITROGLYCERIN
  13. RED WINE [Concomitant]
     Active Substance: RED WINE
  14. ZOCOR [Concomitant]
     Active Substance: SIMVASTATIN
  15. METAXALONE. [Concomitant]
     Active Substance: METAXALONE
     Dosage: 1 TABLET BY MOUTH, 3 TIMES A DAY, 3 REFILLS, 3 TOTAL REFILLS
     Route: 048
  16. ZYRTEC [Concomitant]
     Active Substance: CETIRIZINE HYDROCHLORIDE
     Route: 065
  17. ZOLPIDEM [Concomitant]
     Active Substance: ZOLPIDEM\ZOLPIDEM TARTRATE
     Dosage: 1 TABLET BY MOUTH AS NEEDED
     Route: 048
  18. MELOXICAM. [Concomitant]
     Active Substance: MELOXICAM
     Dosage: 1 TAB BY MOUTH EVERYDAY, 3 REFILLS, 3 TOTAL
     Route: 048
  19. ZETIA [Concomitant]
     Active Substance: EZETIMIBE
     Dosage: 1 TABLET BY MOUTH EVERYDAY, 3 REFILLS, 3 TOTAL
     Route: 048
  20. OMNARIS [Concomitant]
     Active Substance: CICLESONIDE
  21. PREDNISONE. [Concomitant]
     Active Substance: PREDNISONE
  22. SYNTHROID [Concomitant]
     Active Substance: LEVOTHYROXINE SODIUM
     Dosage: 1 TAB BY MOUTH EVERYDAY, 1 REFILLS, 1 TOTAL
     Route: 048
  23. FLONASE (UNITED STATES) [Concomitant]
     Dosage: 1 NASAL SPRAY, EACH NOSTRIL, EVERYDAY 4 REFILLS, 4 TOTAL REFILLS
     Route: 045

REACTIONS (1)
  - Somnolence [Unknown]
